FAERS Safety Report 10228968 (Version 1)
Quarter: 2014Q2

REPORT INFORMATION
  Report Type: Report from Study
  Country: GR (occurrence: GR)
  Receive Date: 20140610
  Receipt Date: 20140610
  Transmission Date: 20141212
  Serious: Yes (Hospitalization)
  Sender: FDA-Public Use
  Company Number: GR-GLAXOSMITHKLINE-B1000304A

PATIENT
  Age: 79 Year
  Sex: Male

DRUGS (4)
  1. PAZOPANIB [Suspect]
     Indication: SMALL CELL LUNG CANCER
     Dosage: 800MG PER DAY
     Route: 048
     Dates: start: 20140513, end: 20140515
  2. MONOCORD [Concomitant]
     Dosage: 20MG TWICE PER DAY
     Route: 048
  3. KARVEA [Concomitant]
     Dosage: 6.2MG TWICE PER DAY
     Route: 048
  4. EUTHYROX [Concomitant]
     Indication: HYPOTHYROIDISM
     Dosage: 50MG PER DAY
     Route: 048

REACTIONS (2)
  - Hyponatraemia [Recovering/Resolving]
  - Circulatory collapse [Recovering/Resolving]
